FAERS Safety Report 14008371 (Version 1)
Quarter: 2017Q3

REPORT INFORMATION
  Report Type: Spontaneous
  Country: ES (occurrence: ES)
  Receive Date: 20170925
  Receipt Date: 20170925
  Transmission Date: 20171128
  Serious: Yes (Other)
  Sender: FDA-Public Use
  Company Number: ES-TEVA-807553ISR

PATIENT
  Age: 47 Year
  Sex: Female

DRUGS (1)
  1. ZONISAMIDA TEVA [Suspect]
     Active Substance: ZONISAMIDE
     Indication: MIGRAINE WITH AURA
     Route: 048
     Dates: start: 201707, end: 201708

REACTIONS (2)
  - Meige^s syndrome [Not Recovered/Not Resolved]
  - Blepharospasm [Not Recovered/Not Resolved]

NARRATIVE: CASE EVENT DATE: 201707
